FAERS Safety Report 5847382-1 (Version None)
Quarter: 2008Q3

REPORT INFORMATION
  Report Type: 
  Country: None (occurrence: None)
  Receive Date: 20080815
  Receipt Date: 20080806
  Transmission Date: 20090109
  Serious: Yes (Other)
  Sender: FDA-Public Use
  Company Number: US-WYE-H05463508

PATIENT
  Age: 68 Year
  Sex: Female
  Weight: 63.56 kg

DRUGS (8)
  1. NEUMEGA [Suspect]
     Indication: ANAEMIA
     Route: 058
     Dates: start: 20070101
  2. NEUMEGA [Suspect]
     Indication: MYELODYSPLASTIC SYNDROME
  3. ATENOLOL [Concomitant]
     Dosage: 2.5MG AT UNKNOWN FREQUENCY
  4. SYNTHROID [Concomitant]
  5. KLONOPIN [Concomitant]
     Dosage: 0.5MG HS
  6. SERTRALINE [Concomitant]
     Dosage: 200MG AT UNKNOWN FREQUENCY
  7. ARANESP [Concomitant]
     Dosage: UNKNOWN DOSE EVERY 2 WEEKS
     Route: 058
  8. AMITRIPTYLINE HCL [Concomitant]
     Dosage: 200MG QHS

REACTIONS (6)
  - ARTHRALGIA [None]
  - CONDITION AGGRAVATED [None]
  - DECREASED ACTIVITY [None]
  - FIBROMYALGIA [None]
  - MYALGIA [None]
  - OEDEMA PERIPHERAL [None]
